FAERS Safety Report 4767083-0 (Version None)
Quarter: 2005Q3

REPORT INFORMATION
  Report Type: 
  Country: None (occurrence: None)
  Receive Date: 20050908
  Receipt Date: 20050824
  Transmission Date: 20060218
  Serious: Yes (Other)
  Sender: FDA-Public Use
  Company Number: 2005P1000249

PATIENT
  Age: 56 Year
  Sex: Female

DRUGS (4)
  1. RETEVASE [Suspect]
     Indication: ACUTE MYOCARDIAL INFARCTION
     Dosage: 5 IU; IV
     Route: 042
     Dates: start: 20050802, end: 20050802
  2. ABCIXIMAB (ABCIXIMAB) [Suspect]
     Indication: ACUTE MYOCARDIAL INFARCTION
     Dosage: 8 ML; X1; IV
     Route: 042
     Dates: start: 20050802, end: 20050802
  3. HEPARIN [Concomitant]
  4. ACE INHIBITOR NOS [Concomitant]

REACTIONS (4)
  - BLOOD CREATINE PHOSPHOKINASE INCREASED [None]
  - BLOOD CREATINE PHOSPHOKINASE MB INCREASED [None]
  - ELECTROCARDIOGRAM ST SEGMENT ELEVATION [None]
  - INFARCTION [None]
